FAERS Safety Report 18363984 (Version 3)
Quarter: 2020Q4

REPORT INFORMATION
  Report Type: Report from Study
  Country: CA (occurrence: CA)
  Receive Date: 20201009
  Receipt Date: 20201222
  Transmission Date: 20210114
  Serious: Yes (Other)
  Sender: FDA-Public Use
  Company Number: CA-JNJFOC-20201004448

PATIENT
  Age: 14 Year
  Sex: Female
  Weight: 64.5 kg

DRUGS (1)
  1. REMICADE [Suspect]
     Active Substance: INFLIXIMAB
     Indication: CROHN^S DISEASE
     Route: 042
     Dates: start: 20190204

REACTIONS (2)
  - Fistula [Recovering/Resolving]
  - Drain removal [Recovering/Resolving]
